FAERS Safety Report 17529819 (Version 1)
Quarter: 2020Q1

REPORT INFORMATION
  Report Type: Spontaneous
  Country: DE (occurrence: DE)
  Receive Date: 20200311
  Receipt Date: 20200311
  Transmission Date: 20200409
  Serious: Yes (Other)
  Sender: FDA-Public Use
  Company Number: DE-MYLANLABS-2020M1026122

PATIENT
  Age: 75 Year
  Sex: Female

DRUGS (11)
  1. SELENIUM [Concomitant]
     Active Substance: SELENIUM
     Dosage: UNK
  2. CANDESARTAN. [Suspect]
     Active Substance: CANDESARTAN
     Indication: PRODUCT USED FOR UNKNOWN INDICATION
     Dosage: UNK
     Route: 048
  3. SALBUTAMOL [Concomitant]
     Active Substance: ALBUTEROL
     Dosage: UNK
  4. VITAMIN D                          /00107901/ [Concomitant]
     Active Substance: ERGOCALCIFEROL
     Dosage: UNK
  5. ACETYLSALICYLIC ACID [Concomitant]
     Active Substance: ASPIRIN
     Dosage: UNK
  6. NEUREXAN [Concomitant]
     Active Substance: HOMEOPATHICS
     Dosage: UNK
  7. L-THYROXIN                         /00068001/ [Concomitant]
     Active Substance: LEVOTHYROXINE
     Dosage: 100 MICROGRAMS
  8. DAXAS [Concomitant]
     Active Substance: ROFLUMILAST
     Dosage: 2 TIMES 4 WEEKS DAXAS 250 MG, THEN 500 MG
     Dates: start: 201908
  9. ULTIBRO BREEZHALER [Concomitant]
     Active Substance: GLYCOPYRRONIUM\INDACATEROL
     Dosage: UNK
  10. VALSARTAN. [Concomitant]
     Active Substance: VALSARTAN
     Dosage: UNK
  11. ALVESCO [Concomitant]
     Active Substance: CICLESONIDE
     Dosage: 160 MICROGRAMS

REACTIONS (15)
  - Arteriosclerosis [Unknown]
  - Vascular occlusion [Unknown]
  - Anxiety [Unknown]
  - Gamma-glutamyltransferase increased [Unknown]
  - Vasodilatation [Unknown]
  - Pulmonary arterial hypertension [Unknown]
  - Decreased appetite [Unknown]
  - Insomnia [Unknown]
  - Headache [Unknown]
  - Diarrhoea [Unknown]
  - Palpitations [Unknown]
  - Nausea [Unknown]
  - Visual impairment [Unknown]
  - Dizziness [Unknown]
  - Weight decreased [Unknown]
